FAERS Safety Report 23399771 (Version 1)
Quarter: 2024Q1

REPORT INFORMATION
  Report Type: Spontaneous
  Country: AU (occurrence: AU)
  Receive Date: 20240114
  Receipt Date: 20240114
  Transmission Date: 20240409
  Serious: Yes (Hospitalization)
  Sender: FDA-Public Use
  Company Number: AU-AMGEN-AUSCT2024005769

PATIENT
  Age: 74 Year
  Sex: Female

DRUGS (21)
  1. BEVACIZUMAB [Suspect]
     Active Substance: BEVACIZUMAB
     Indication: Ovarian cancer recurrent
     Dosage: 10 MILLIGRAM/KILOGRAM (DOSE ADMINISTERED: 735 MG), Q2WK
     Route: 042
     Dates: start: 20230511, end: 20230801
  2. PEMBROLIZUMAB [Suspect]
     Active Substance: PEMBROLIZUMAB
     Indication: Ovarian cancer recurrent
     Dosage: 400 MILLIGRAM, OR MATCHING PLACEBO IV (VOLUME OF INFUSION: 100 ML) EVERY 6 WEEKS (Q6W)
     Route: 042
     Dates: start: 20230511, end: 20230620
  3. PACLITAXEL [Suspect]
     Active Substance: PACLITAXEL
     Indication: Ovarian cancer recurrent
     Dosage: 145 MILLIGRAM INITIAL DOSE, (FLUCTUATED DOSAGE)
     Route: 042
     Dates: start: 20230511, end: 20230620
  4. PACLITAXEL [Suspect]
     Active Substance: PACLITAXEL
     Dosage: 80 MILLIGRAM/SQ. METER, ON DAYS 1, 8, 15 OF EVERY 3 WEEKS (Q3W) CYCLE;
     Route: 042
  5. PROLIA [Concomitant]
     Active Substance: DENOSUMAB
     Indication: Osteoporosis
     Dosage: 60 MILLIGRAM
     Route: 042
     Dates: start: 20201204
  6. ESOMEPRAZOLE [Concomitant]
     Active Substance: ESOMEPRAZOLE
  7. LIPIDIL [Concomitant]
     Active Substance: FENOFIBRATE
     Indication: Dyslipidaemia
     Dosage: 48 MILLIGRAM
     Route: 048
     Dates: start: 20160818
  8. APIXABAN [Concomitant]
     Active Substance: APIXABAN
  9. CHOLECALCIFEROL [Concomitant]
     Active Substance: CHOLECALCIFEROL
  10. MIRTAZAPINE [Concomitant]
     Active Substance: MIRTAZAPINE
  11. BENZYDAMINE [Concomitant]
     Active Substance: BENZYDAMINE
  12. PANADOL [Concomitant]
     Active Substance: ACETAMINOPHEN
     Indication: Analgesic therapy
     Dosage: UNK
     Route: 048
     Dates: start: 20230530
  13. LOPERAMIDE HYDROCHLORIDE [Concomitant]
     Active Substance: LOPERAMIDE HYDROCHLORIDE
  14. MAGNESIUM [Concomitant]
     Active Substance: MAGNESIUM
  15. DEXAMETHASONE [Concomitant]
     Active Substance: DEXAMETHASONE
  16. LORATADINE [Concomitant]
     Active Substance: LORATADINE
  17. NIZATIDINE [Concomitant]
     Active Substance: NIZATIDINE
  18. EMEXLON [Concomitant]
     Indication: Vomiting
     Dosage: UNK
     Dates: start: 20230622, end: 20230624
  19. ESOMEPRAZOLE MAGNESIUM [Concomitant]
     Active Substance: ESOMEPRAZOLE\ESOMEPRAZOLE MAGNESIUM\ESOMEPRAZOLE MAGNESIUM DIHYDRATE
  20. ASCORBIC ACID [Concomitant]
     Active Substance: ASCORBIC ACID
  21. ACETAMINOPHEN [Concomitant]
     Active Substance: ACETAMINOPHEN
     Indication: Back pain

REACTIONS (2)
  - Hepatitis [Not Recovered/Not Resolved]
  - Myasthenia gravis [Not Recovered/Not Resolved]

NARRATIVE: CASE EVENT DATE: 20230627
